FAERS Safety Report 10746223 (Version 5)
Quarter: 2015Q2

REPORT INFORMATION
  Report Type: Report from Study
  Country: CA (occurrence: CA)
  Receive Date: 20150128
  Receipt Date: 20150402
  Transmission Date: 20150821
  Serious: Yes (Hospitalization, Other)
  Sender: FDA-Public Use
  Company Number: CA-ABBVIE-15K-028-1336518-00

PATIENT
  Age: 22 Year
  Sex: Female

DRUGS (2)
  1. HUMIRA [Suspect]
     Active Substance: ADALIMUMAB
     Indication: INTESTINAL FISTULA
     Route: 058
     Dates: start: 20110323, end: 20150108
  2. HUMIRA [Suspect]
     Active Substance: ADALIMUMAB
     Indication: CROHN^S DISEASE
     Route: 058
     Dates: start: 20150121

REACTIONS (9)
  - Cerebrovascular accident [Recovered/Resolved]
  - Medical device complication [Unknown]
  - Brain oedema [Not Recovered/Not Resolved]
  - Muscular weakness [Unknown]
  - Cerebrovascular disorder [Recovered/Resolved]
  - Gait disturbance [Not Recovered/Not Resolved]
  - Burning sensation [Recovered/Resolved]
  - Pyrexia [Unknown]
  - Catheter site rash [Recovered/Resolved]

NARRATIVE: CASE EVENT DATE: 2015
